FAERS Safety Report 13500075 (Version 1)
Quarter: 2017Q2

REPORT INFORMATION
  Report Type: Spontaneous
  Country: SE (occurrence: SE)
  Receive Date: 20170501
  Receipt Date: 20170501
  Transmission Date: 20170830
  Serious: Yes (Hospitalization)
  Sender: FDA-Public Use
  Company Number: SE-TEVA-762312ACC

PATIENT
  Age: 61 Year
  Sex: Female

DRUGS (11)
  1. NOVALUZID [Concomitant]
  2. BRICANYL [Concomitant]
     Active Substance: TERBUTALINE SULFATE
  3. TRADOLAN [Concomitant]
     Active Substance: TRAMADOL
  4. FLUNITRAZEPAM [Suspect]
     Active Substance: FLUNITRAZEPAM
     Route: 048
     Dates: start: 20150822, end: 20150822
  5. ACETIC ACID APL [Concomitant]
  6. ZOLPIDEM [Suspect]
     Active Substance: ZOLPIDEM\ZOLPIDEM TARTRATE
     Route: 048
     Dates: start: 20150822, end: 20150822
  7. FLOXACILLIN SODIUM [Concomitant]
     Active Substance: FLUCLOXACILLIN SODIUM ANHYDROUS
  8. NORSPAN [Concomitant]
     Active Substance: BUPRENORPHINE
  9. SOBRIL [Concomitant]
     Active Substance: OXAZEPAM
  10. KALEORID [Concomitant]
     Active Substance: POTASSIUM CHLORIDE
  11. LOCERYL [Concomitant]
     Active Substance: AMOROLFINE HYDROCHLORIDE

REACTIONS (3)
  - Oxygen saturation decreased [Recovered/Resolved]
  - Loss of consciousness [Recovered/Resolved]
  - Toxicity to various agents [Recovered/Resolved]

NARRATIVE: CASE EVENT DATE: 20150822
